FAERS Safety Report 5883947-9 (Version None)
Quarter: 2008Q3

REPORT INFORMATION
  Report Type: 
  Country: None (occurrence: None)
  Receive Date: 20080915
  Receipt Date: 20080910
  Transmission Date: 20090109
  Serious: Yes (Hospitalization)
  Sender: FDA-Public Use
  Company Number: B0536549A

PATIENT
  Age: 85 Year
  Sex: Female

DRUGS (7)
  1. AMOXICILLIN [Suspect]
     Indication: URINARY TRACT INFECTION
     Dosage: 1G THREE TIMES PER DAY
     Route: 048
     Dates: start: 20080319, end: 20080321
  2. ZYPREXA [Suspect]
     Indication: DRUG USE FOR UNKNOWN INDICATION
     Dosage: 1TAB PER DAY
     Route: 048
     Dates: start: 20080319, end: 20080323
  3. NOROXIN [Suspect]
     Indication: DRUG USE FOR UNKNOWN INDICATION
     Route: 065
     Dates: start: 20080314, end: 20080317
  4. TEGRETOL [Suspect]
     Indication: DRUG USE FOR UNKNOWN INDICATION
     Route: 048
     Dates: end: 20080321
  5. NOCTRAN 10 [Concomitant]
     Indication: DRUG USE FOR UNKNOWN INDICATION
     Dosage: 10MG PER DAY
     Route: 048
  6. OMEPRAZOLE [Concomitant]
     Indication: DRUG USE FOR UNKNOWN INDICATION
     Dosage: 1TAB AT NIGHT
     Route: 048
  7. BISOPROLOL FUMARATE [Concomitant]
     Indication: DRUG USE FOR UNKNOWN INDICATION
     Dosage: .5TAB PER DAY
     Route: 048

REACTIONS (9)
  - DYSPNOEA [None]
  - EOSINOPHILIA [None]
  - GENERALISED ERYTHEMA [None]
  - HYPERSENSITIVITY [None]
  - PRURITUS [None]
  - RALES [None]
  - SKIN LESION [None]
  - SKIN REACTION [None]
  - TOXIC SKIN ERUPTION [None]
